FAERS Safety Report 11773339 (Version 2)
Quarter: 2016Q2

REPORT INFORMATION
  Report Type: Spontaneous
  Country: US (occurrence: US)
  Receive Date: 20151124
  Receipt Date: 20160531
  Transmission Date: 20160815
  Serious: Yes (Hospitalization, Other)
  Sender: FDA-Public Use
  Company Number: US-MDT-ADR-2015-02221

PATIENT
  Age: 22 Year
  Sex: Female

DRUGS (1)
  1. LIORESAL [Suspect]
     Active Substance: BACLOFEN
     Route: 037

REACTIONS (8)
  - Muscle tightness [Recovered/Resolved]
  - Cerebrospinal fluid leakage [Recovered/Resolved]
  - Nausea [Recovered/Resolved]
  - Implant site extravasation [Recovered/Resolved]
  - Gait disturbance [Recovered/Resolved]
  - Swelling [Recovered/Resolved]
  - No therapeutic response [Recovered/Resolved]
  - Vomiting [Recovered/Resolved]
